FAERS Safety Report 11839924 (Version 1)
Quarter: 2015Q4

REPORT INFORMATION
  Report Type: Spontaneous
  Country: US (occurrence: None)
  Receive Date: 20151215
  Receipt Date: 20151215
  Transmission Date: 20160305
  Serious: No
  Sender: FDA-Public Use
  Company Number: None

PATIENT
  Age: 71 Year
  Sex: Female

DRUGS (7)
  1. AUGMENTIN [Concomitant]
     Active Substance: AMOXICILLIN\CLAVULANATE POTASSIUM
  2. MULTIVITAMIN [Concomitant]
     Active Substance: VITAMINS
  3. BIAXIN [Concomitant]
     Active Substance: CLARITHROMYCIN
  4. FORTEO [Suspect]
     Active Substance: TERIPARATIDE
     Indication: OSTEOPOROSIS
     Dosage: 1 ONCE DAILY  GIVEN INTO/UNDER THE SKIN
     Dates: start: 20150701
  5. ANTIBIOTICS [Concomitant]
     Active Substance: UNSPECIFIED INGREDIENT
  6. IPRATROPIUM [Concomitant]
     Active Substance: IPRATROPIUM
  7. AZITHROMYCIN [Concomitant]
     Active Substance: AZITHROMYCIN ANHYDROUS

REACTIONS (4)
  - Arthralgia [None]
  - Needle issue [None]
  - Malaise [None]
  - Pain [None]

NARRATIVE: CASE EVENT DATE: 20151001
